FAERS Safety Report 9567167 (Version 1)
Quarter: 2013Q3

REPORT INFORMATION
  Report Type: Spontaneous
  Country: US (occurrence: US)
  Receive Date: 20130930
  Receipt Date: 20130930
  Transmission Date: 20140515
  Serious: No
  Sender: FDA-Public Use
  Company Number: US-AMGEN-USASP2012061691

PATIENT
  Sex: Male

DRUGS (10)
  1. ENBREL [Suspect]
     Indication: PRODUCT USED FOR UNKNOWN INDICATION
     Dosage: 50 MG, QWK
     Route: 058
  2. METHOTREXATE [Concomitant]
     Dosage: 2.5 MG, UNK
  3. METFORMIN [Concomitant]
     Dosage: 500 MG, UNK
  4. LISINOPRIL [Concomitant]
     Dosage: 5 MG, UNK
  5. FENOFIBRATE [Concomitant]
     Dosage: 67 MG, UNK
  6. GLIPIZIDE [Concomitant]
     Dosage: 10 MG, UNK
  7. JANUVIA [Concomitant]
     Dosage: 25 MG, UNK
  8. XALATAN [Concomitant]
     Dosage: 0.005 %, UNK
  9. FOLIC ACID [Concomitant]
     Dosage: UNK
  10. FISH OIL [Concomitant]
     Dosage: UNK

REACTIONS (2)
  - Localised infection [Unknown]
  - Injury [Unknown]
